FAERS Safety Report 8847753 (Version 1)
Quarter: 2012Q4

REPORT INFORMATION
  Report Type: 
  Country: US (occurrence: US)
  Receive Date: 20121018
  Receipt Date: 20121018
  Transmission Date: 20130627
  Serious: Yes (Hospitalization, Other)
  Sender: FDA-Public Use
  Company Number: US-B.I. PHARMACEUTICALS,INC./RIDGEFIELD-2012-EU-05149GD

PATIENT
  Sex: Female

DRUGS (34)
  1. NEVIRAPINE [Suspect]
     Indication: HIV INFECTION
  2. NEVIRAPINE [Suspect]
     Indication: ACQUIRED IMMUNODEFICIENCY SYNDROME
  3. LOPINAVIR W/RITONAVIR [Suspect]
     Indication: HIV INFECTION
  4. LOPINAVIR W/RITONAVIR [Suspect]
     Indication: ACQUIRED IMMUNODEFICIENCY SYNDROME
  5. EMTRICITABINE W/TENOFOVIR [Suspect]
     Indication: HIV INFECTION
  6. EMTRICITABINE W/TENOFOVIR [Suspect]
     Indication: ACQUIRED IMMUNODEFICIENCY SYNDROME
  7. ZIDOVUDINE [Suspect]
     Indication: HIV INFECTION
  8. ZIDOVUDINE [Suspect]
     Indication: ACQUIRED IMMUNODEFICIENCY SYNDROME
  9. LAMIVUDINE [Suspect]
     Indication: HIV INFECTION
  10. LAMIVUDINE [Suspect]
     Indication: ACQUIRED IMMUNODEFICIENCY SYNDROME
  11. INDINAVIR [Suspect]
     Indication: HIV INFECTION
  12. INDINAVIR [Suspect]
     Indication: ACQUIRED IMMUNODEFICIENCY SYNDROME
  13. STAVUDINE [Suspect]
     Indication: HIV INFECTION
  14. STAVUDINE [Suspect]
     Indication: ACQUIRED IMMUNODEFICIENCY SYNDROME
  15. DIDANOSINE [Suspect]
     Indication: HIV INFECTION
  16. DIDANOSINE [Suspect]
     Indication: ACQUIRED IMMUNODEFICIENCY SYNDROME
  17. HYDROXYUREA [Suspect]
     Indication: HIV INFECTION
  18. HYDROXYUREA [Suspect]
     Indication: ACQUIRED IMMUNODEFICIENCY SYNDROME
  19. NELFINAVIR [Suspect]
     Indication: HIV INFECTION
  20. NELFINAVIR [Suspect]
     Indication: ACQUIRED IMMUNODEFICIENCY SYNDROME
  21. SAQUINAVIR [Suspect]
     Indication: HIV INFECTION
  22. SAQUINAVIR [Suspect]
     Indication: ACQUIRED IMMUNODEFICIENCY SYNDROME
  23. ABACAVIR [Suspect]
     Indication: HIV INFECTION
  24. ABACAVIR [Suspect]
     Indication: ACQUIRED IMMUNODEFICIENCY SYNDROME
  25. ACETAZOLAMIDE [Concomitant]
  26. FLUCONAZOLE [Concomitant]
  27. NAPROXEN [Concomitant]
  28. GABAPENTIN [Concomitant]
  29. NORTRIPTYLINE [Concomitant]
  30. CALCIUM PHOSPHATE [Concomitant]
  31. CHOLECALCIFEROL [Concomitant]
  32. TRAZODONE [Concomitant]
  33. LIDOCAINE [Concomitant]
     Route: 062
  34. FEXOFENADINE HYDROCHLORIDE [Concomitant]

REACTIONS (4)
  - Myocardial infarction [Recovered/Resolved]
  - Coronary artery disease [Recovered/Resolved]
  - Myocardial ischaemia [Recovered/Resolved]
  - Dyslipidaemia [Unknown]
